FAERS Safety Report 21415337 (Version 1)
Quarter: 2022Q4

REPORT INFORMATION
  Report Type: Spontaneous
  Country: US (occurrence: None)
  Receive Date: 20221006
  Receipt Date: 20221006
  Transmission Date: 20230112
  Serious: Yes (Other)
  Sender: FDA-Public Use
  Company Number: US-H14001-15-01889

PATIENT
  Sex: Female
  Weight: 68 kg

DRUGS (2)
  1. INFUMORPH [Suspect]
     Active Substance: MORPHINE SULFATE
     Indication: Spinal pain
     Dosage: IN A 24H PERIOD
     Route: 037
     Dates: start: 20111230, end: 20151021
  2. INFUMORPH [Suspect]
     Active Substance: MORPHINE SULFATE
     Indication: Post laminectomy syndrome

REACTIONS (3)
  - Product administration error [Unknown]
  - Withdrawal syndrome [Unknown]
  - Product dose omission issue [Unknown]
